FAERS Safety Report 7909411-0 (Version None)
Quarter: 2011Q4

REPORT INFORMATION
  Report Type: 
  Country: None (occurrence: None)
  Receive Date: 20111111
  Receipt Date: 20110406
  Transmission Date: 20120403
  Serious: Yes (Hospitalization)
  Sender: FDA-Public Use
  Company Number: IT-BAYER-2011-019684

PATIENT
  Age: 49 Year
  Sex: Male
  Weight: 75 kg

DRUGS (5)
  1. ALOES EXTRACT [Concomitant]
  2. NEXAVAR [Suspect]
     Indication: HEPATIC NEOPLASM MALIGNANT
     Dosage: DAILY DOSE 400 MG
     Route: 048
     Dates: start: 20110218, end: 20110302
  3. NEXIUM [Concomitant]
     Indication: GASTRITIS PROPHYLAXIS
     Dosage: DAILY DOSE 40 MG
     Route: 048
     Dates: start: 20110103, end: 20110302
  4. IRBESARTAN AND HYDROCHLOROTHIAZIDE [Concomitant]
     Indication: HYPERTENSION
     Dosage: DAILY DOSE 300/12,5
     Route: 048
     Dates: start: 20110218
  5. HALCION [Concomitant]
     Indication: INSOMNIA
     Dosage: DAILY DOSE 0.25
     Route: 048
     Dates: start: 20110218

REACTIONS (2)
  - VENA CAVA THROMBOSIS [None]
  - PULMONARY THROMBOSIS [None]
